FAERS Safety Report 7640940-3 (Version None)
Quarter: 2011Q3

REPORT INFORMATION
  Report Type: 
  Country: None (occurrence: None)
  Receive Date: 20110721
  Receipt Date: 20110712
  Transmission Date: 20111222
  Serious: Yes (Other)
  Sender: FDA-Public Use
  Company Number: WAES 0912FIN00011

PATIENT
  Age: 61 Year
  Sex: Male

DRUGS (11)
  1. VYTORIN [Suspect]
     Indication: HYPERCHOLESTEROLAEMIA
     Dosage: 10-40 MG, DAILY, PO
     Route: 048
     Dates: start: 20090324, end: 20091208
  2. TAB LAROPIPRANT + NIACIN [Suspect]
     Indication: HIGH DENSITY LIPOPROTEIN DECREASED
     Dosage: 20 MG-1GM, DAILY
     Dates: start: 20090423, end: 20090501
  3. ASPIRIN [Concomitant]
  4. HYDROCHLOROTHIAZIDE [Concomitant]
  5. LANSOPRAZOLE [Concomitant]
  6. TAB LAROPIPRANT + NIACIN [Suspect]
     Indication: HIGH DENSITY LIPOPROTEIN DECREASED
     Dosage: 40 MG-2G GM, DAILY, PO
     Route: 048
     Dates: start: 20090501, end: 20090617
  7. BISOPROLOL FUMARATE [Concomitant]
  8. OMACOR [Concomitant]
  9. METFORMIN [Concomitant]
  10. TAB LAROPIPRANT (+) NIACIN [Suspect]
     Indication: HIGH DENSITY LIPOPROTEIN DECREASED
     Dosage: 2 GM, DAILY, PO
     Route: 048
     Dates: start: 20090618
  11. AMLODIPINE [Concomitant]

REACTIONS (3)
  - ABDOMINAL PAIN [None]
  - HEPATITIS [None]
  - ALCOHOL USE [None]
